FAERS Safety Report 23421340 (Version 1)
Quarter: 2024Q1

REPORT INFORMATION
  Report Type: Spontaneous
  Country: US (occurrence: None)
  Receive Date: 20240118
  Receipt Date: 20240118
  Transmission Date: 20240410
  Serious: Yes (unspecified)
  Sender: FDA-Public Use
  Company Number: None

PATIENT
  Age: 45 Year
  Sex: Female

DRUGS (2)
  1. BRAFTOVI [Suspect]
     Active Substance: ENCORAFENIB
     Indication: Metastases to breast
     Dosage: FREQUENCY : TWICE A DAY;?
     Route: 048
  2. MEKTOVI [Suspect]
     Active Substance: BINIMETINIB

REACTIONS (2)
  - Therapy change [None]
  - Neoplasm progression [None]
